FAERS Safety Report 5832666-3 (Version None)
Quarter: 2008Q3

REPORT INFORMATION
  Report Type: 
  Country: None (occurrence: None)
  Receive Date: 20080804
  Receipt Date: 20080729
  Transmission Date: 20090109
  Serious: Yes (Life-Threatening, Hospitalization)
  Sender: FDA-Public Use
  Company Number: PHEH2008US06269

PATIENT
  Sex: Male
  Weight: 73.923 kg

DRUGS (6)
  1. EXELON [Suspect]
     Indication: DEMENTIA
     Dosage: 4.6 MG, QD
     Route: 062
     Dates: start: 20080628, end: 20080715
  2. EXELON [Suspect]
     Dosage: THREE 4.6 MG PATCHES
     Dates: end: 20080714
  3. AMITIZA [Concomitant]
     Indication: CONSTIPATION
     Dosage: 24 UG, BID
     Route: 048
     Dates: start: 20080626, end: 20080718
  4. REMERON [Concomitant]
     Indication: DEPRESSION
     Dosage: 15 MG, QD
     Route: 048
     Dates: start: 20080628, end: 20080714
  5. KLONOPIN [Concomitant]
     Indication: ANXIETY
     Dosage: 0.25 MG, QD
     Route: 048
     Dates: start: 20080726, end: 20080714
  6. SINEMET CR [Concomitant]
     Indication: PARKINSON'S DISEASE
     Dosage: 50/200 MG, Q 3 HOURS
     Route: 048
     Dates: start: 20080626

REACTIONS (9)
  - AGITATION [None]
  - BENIGN PROSTATIC HYPERPLASIA [None]
  - DRUG ADMINISTRATION ERROR [None]
  - LETHARGY [None]
  - OVERDOSE [None]
  - OXYGEN SATURATION DECREASED [None]
  - RESPIRATORY DISTRESS [None]
  - TACHYCARDIA [None]
  - URINARY TRACT INFECTION [None]
